FAERS Safety Report 26198698 (Version 1)
Quarter: 2025Q4

REPORT INFORMATION
  Report Type: Spontaneous
  Country: TW (occurrence: TW)
  Receive Date: 20251225
  Receipt Date: 20251225
  Transmission Date: 20260117
  Serious: Yes (Hospitalization, Other)
  Sender: BOEHRINGER INGELHEIM
  Company Number: TW-BoehringerIngelheim-2025-BI-115841

PATIENT
  Age: 81 Year
  Sex: Female
  Weight: 55.5 kg

DRUGS (22)
  1. LINAGLIPTIN [Suspect]
     Active Substance: LINAGLIPTIN
     Indication: Type 2 diabetes mellitus
     Dates: start: 20241204
  2. LINAGLIPTIN [Suspect]
     Active Substance: LINAGLIPTIN
     Dates: start: 20251021, end: 20251119
  3. GLYXAMBI [Suspect]
     Active Substance: EMPAGLIFLOZIN\LINAGLIPTIN
     Indication: Type 2 diabetes mellitus
     Dosage: 25/5MG
  4. LIVALO [Suspect]
     Active Substance: PITAVASTATIN CALCIUM
     Indication: Hyperlipidaemia
     Dates: start: 20251009, end: 20251028
  5. LIVALO [Suspect]
     Active Substance: PITAVASTATIN CALCIUM
     Dates: start: 20251107, end: 20251119
  6. ASPIRIN [Suspect]
     Active Substance: ASPIRIN
     Indication: Coronary artery disease
     Dates: start: 20250709
  7. ASPIRIN [Suspect]
     Active Substance: ASPIRIN
     Dates: start: 20251104, end: 20251119
  8. ACETYLCARNITINE HYDROCHLORIDE, L- [Suspect]
     Active Substance: ACETYLCARNITINE HYDROCHLORIDE
     Indication: Hypertension
     Dates: start: 20250929
  9. ACETYLCARNITINE HYDROCHLORIDE, L- [Suspect]
     Active Substance: ACETYLCARNITINE HYDROCHLORIDE
     Dates: start: 20251104, end: 20251119
  10. TOUJEO [Concomitant]
     Active Substance: INSULIN GLARGINE
     Indication: Product used for unknown indication
     Dosage: 1.5ML SC 50U QDAC
     Dates: start: 20251104
  11. KEPPRA [Concomitant]
     Active Substance: LEVETIRACETAM
     Indication: Product used for unknown indication
     Dosage: 100MG/ML PO 5ML QD
     Dates: start: 20251104
  12. NEXIUM [Concomitant]
     Active Substance: ESOMEPRAZOLE MAGNESIUM
     Indication: Product used for unknown indication
     Dosage: PO 1#QDAC
     Dates: start: 20251104, end: 20251202
  13. CLOSTRIDIUM BUTYRICUM SPORES STRAIN M-55 [Concomitant]
     Active Substance: CLOSTRIDIUM BUTYRICUM SPORES STRAIN M-55
     Indication: Product used for unknown indication
     Dosage: 1GM/PKG PO 1#BID
     Dates: start: 20251104
  14. BISOLVON [Concomitant]
     Active Substance: BROMHEXINE HYDROCHLORIDE
     Indication: Product used for unknown indication
     Dosage: 50ML 2MG/ML PO 6ML Q6H
     Dates: start: 20251104, end: 20251202
  15. NEOMYCIN [Concomitant]
     Active Substance: NEOMYCIN
     Indication: Product used for unknown indication
     Dosage: 0.5% 28GM T QD PRN
     Dates: start: 20251104, end: 20251202
  16. FLUTICASONE [Concomitant]
     Active Substance: FLUTICASONE
     Indication: Product used for unknown indication
     Dates: start: 20251104, end: 20251125
  17. Mycomb [Concomitant]
     Indication: Product used for unknown indication
     Dates: start: 20251111, end: 20251125
  18. NOVORAPID [Concomitant]
     Active Substance: INSULIN ASPART
     Indication: Product used for unknown indication
     Dosage: 300U/3ML SC 23U TIDAC
     Dates: start: 20251030
  19. SODIUM CHLORIDE [Concomitant]
     Active Substance: SODIUM CHLORIDE
     Indication: Product used for unknown indication
     Dosage: 0.45% 20ML IH 1#QD
     Dates: start: 20251030
  20. ALLEGRA [Concomitant]
     Active Substance: FEXOFENADINE HYDROCHLORIDE
     Indication: Product used for unknown indication
     Dates: start: 20251113, end: 20251127
  21. SENOKOT [Concomitant]
     Active Substance: SENNOSIDES
     Indication: Product used for unknown indication
     Dosage: 7.5MG PO 2#HS
     Dates: start: 20251113, end: 20251127
  22. CLOSTRIDIUM BUTYRICUM SPORES STRAIN M-55 [Concomitant]
     Active Substance: CLOSTRIDIUM BUTYRICUM SPORES STRAIN M-55
     Indication: Product used for unknown indication
     Dosage: 1GM/PKG PO 1#BID
     Dates: start: 20251113, end: 20251127

REACTIONS (15)
  - Autoimmune disorder [Recovered/Resolved]
  - Urosepsis [Recovered/Resolved]
  - Septic shock [Recovered/Resolved]
  - Toxic epidermal necrolysis [Recovered/Resolved]
  - Rash [Recovered/Resolved]
  - Oedema peripheral [Recovered/Resolved]
  - Hypersensitivity [Recovered/Resolved]
  - Skin mass [Recovered/Resolved]
  - Skin lesion [Recovered/Resolved]
  - Abdominal discomfort [Unknown]
  - Type V hyperlipidaemia [Unknown]
  - Dermatitis contact [Unknown]
  - Toxic skin eruption [Unknown]
  - Connective tissue disorder [Unknown]
  - Erythema multiforme [Unknown]

NARRATIVE: CASE EVENT DATE: 20250709
